FAERS Safety Report 4750761-7 (Version None)
Quarter: 2005Q3

REPORT INFORMATION
  Report Type: 
  Country: None (occurrence: None)
  Receive Date: 20050823
  Receipt Date: 20050310
  Transmission Date: 20060218
  Serious: Yes (Hospitalization, Other)
  Sender: FDA-Public Use
  Company Number: US-MERCK-0503USA01900

PATIENT
  Age: 57 Year
  Sex: Female
  Weight: 86 kg

DRUGS (7)
  1. TENORMIN [Concomitant]
     Route: 065
     Dates: start: 19840110, end: 20040512
  2. VIOXX [Suspect]
     Indication: BACK PAIN
     Route: 048
     Dates: start: 20000101, end: 20011001
  3. VIOXX [Suspect]
     Route: 048
     Dates: start: 20020215, end: 20040101
  4. COUMADIN [Concomitant]
     Route: 065
     Dates: start: 19931224
  5. SKELAXIN [Concomitant]
     Route: 065
  6. PROPACET 100 [Concomitant]
     Route: 065
     Dates: start: 20010101, end: 20040501
  7. VALIUM [Concomitant]
     Route: 065

REACTIONS (23)
  - ASTHENIA [None]
  - ATRIAL FIBRILLATION [None]
  - ATRIOVENTRICULAR BLOCK SECOND DEGREE [None]
  - BLOOD CREATINE PHOSPHOKINASE INCREASED [None]
  - BRADYCARDIA [None]
  - CARDIAC MURMUR [None]
  - CARDIAC PACEMAKER INSERTION [None]
  - CARDIOVASCULAR DISORDER [None]
  - CEREBROVASCULAR ACCIDENT [None]
  - DELUSION [None]
  - DIFFICULTY IN WALKING [None]
  - DRUG LEVEL BELOW THERAPEUTIC [None]
  - EMOTIONAL DISTRESS [None]
  - HYPERSOMNIA [None]
  - HYPOTENSION [None]
  - MEMORY IMPAIRMENT [None]
  - MYOCARDIAL INFARCTION [None]
  - OVERDOSE [None]
  - PALPITATIONS [None]
  - SINUS ARREST [None]
  - SLEEP APNOEA SYNDROME [None]
  - SPEECH DISORDER [None]
  - TRANSIENT ISCHAEMIC ATTACK [None]
